FAERS Safety Report 9999295 (Version 1)
Quarter: 2014Q1

REPORT INFORMATION
  Report Type: Spontaneous
  Country: US (occurrence: None)
  Receive Date: 20140311
  Receipt Date: 20140311
  Transmission Date: 20141002
  Serious: Yes (Other)
  Sender: FDA-Public Use
  Company Number: None

PATIENT
  Age: 49 Year
  Sex: Female
  Weight: 104.33 kg

DRUGS (1)
  1. VENLAFAXINE ER 150 MG TEVA USA [Suspect]
     Indication: DEPRESSION
     Dosage: 1 PILL
     Route: 048
     Dates: start: 20140206, end: 20140308

REACTIONS (4)
  - Palpitations [None]
  - Dyspnoea [None]
  - Headache [None]
  - Dizziness [None]
